FAERS Safety Report 8158040 (Version 2)
Quarter: 2012Q4

REPORT INFORMATION
  Report Type: 
  Country: US (occurrence: US)
  Receive Date: 20110927
  Receipt Date: 20121005
  Transmission Date: 20130627
  Serious: No
  Sender: FDA-Public Use
  Company Number: US-BRISTOL-MYERS SQUIBB COMPANY-15921000

PATIENT

DRUGS (1)
  1. AVAPRO [Suspect]

REACTIONS (1)
  - Adverse event [Unknown]
